FAERS Safety Report 4552948-5 (Version None)
Quarter: 2005Q1

REPORT INFORMATION
  Report Type: 
  Country: None (occurrence: None)
  Receive Date: 20050113
  Receipt Date: 20050105
  Transmission Date: 20050727
  Serious: Yes (Hospitalization, Other)
  Sender: FDA-Public Use
  Company Number: 2005006520

PATIENT
  Age: 57 Year
  Sex: Female

DRUGS (3)
  1. DOXYCYCLINE [Suspect]
     Indication: INFECTION
  2. ATORVASTATIN (ATORVASTATIN) [Concomitant]
  3. CANCESARTAN CILEXETIL (CANDESARTAN CILEXETIL) [Concomitant]

REACTIONS (2)
  - OSTEONECROSIS [None]
  - PANCYTOPENIA [None]
